FAERS Safety Report 10186371 (Version 1)
Quarter: 2014Q2

REPORT INFORMATION
  Report Type: Spontaneous
  Country: US (occurrence: US)
  Receive Date: 20140521
  Receipt Date: 20140521
  Transmission Date: 20141212
  Serious: No
  Sender: FDA-Public Use
  Company Number: US-ASTRAZENECA-2013SE65954

PATIENT
  Age: 78 Year
  Sex: Female
  Weight: 62.1 kg

DRUGS (7)
  1. PULMICORT FLEXHALER [Suspect]
     Indication: COUGH
     Route: 055
     Dates: start: 20130824
  2. PRILOSEC [Suspect]
     Indication: GASTROOESOPHAGEAL REFLUX DISEASE
     Route: 048
     Dates: start: 1997
  3. CELEXA [Concomitant]
     Indication: DEPRESSION
  4. NASONEX [Concomitant]
     Indication: UPPER-AIRWAY COUGH SYNDROME
  5. ADVIL [Concomitant]
     Indication: BACK PAIN
  6. CLONAZEPAM [Concomitant]
     Indication: ANXIETY
     Dosage: 0.5MG
  7. LOVASTATIN [Concomitant]
     Indication: BLOOD CHOLESTEROL ABNORMAL
     Dosage: 20MG

REACTIONS (3)
  - Diarrhoea [Unknown]
  - Chest pain [Unknown]
  - Drug ineffective [Unknown]
